FAERS Safety Report 20069130 (Version 1)
Quarter: 2021Q4

REPORT INFORMATION
  Report Type: Spontaneous
  Country: PL (occurrence: PL)
  Receive Date: 20211115
  Receipt Date: 20211115
  Transmission Date: 20220303
  Serious: Yes (Life-Threatening)
  Sender: FDA-Public Use
  Company Number: None

PATIENT
  Age: 46 Year
  Sex: Male
  Weight: 80 kg

DRUGS (3)
  1. CLOMIPRAMINE [Suspect]
     Active Substance: CLOMIPRAMINE
     Dosage: DRUG TAKEN ON 3.01.2021 OR 4.01.2021
     Route: 048
     Dates: start: 202101
  2. RISPERIDONE [Suspect]
     Active Substance: RISPERIDONE
     Dosage: DRUG TAKEN ON 3.01.2021 OR 4.01.2021
     Route: 048
     Dates: start: 202101
  3. MIANSERIN [Suspect]
     Active Substance: MIANSERIN
     Dosage: DRUG TAKEN ON 3.01.2021 OR 4.01.2021
     Route: 048
     Dates: start: 202101

REACTIONS (4)
  - Psychomotor retardation [Unknown]
  - Toxicity to various agents [Unknown]
  - Somnolence [Unknown]
  - Suicide attempt [Unknown]
